FAERS Safety Report 24437286 (Version 1)
Quarter: 2024Q4

REPORT INFORMATION
  Report Type: Spontaneous
  Country: US (occurrence: None)
  Receive Date: 20241011
  Receipt Date: 20241011
  Transmission Date: 20250115
  Serious: Yes (Hospitalization)
  Sender: Public
  Company Number: None

PATIENT
  Age: 43 Year
  Sex: Female
  Weight: 67.1 kg

DRUGS (1)
  1. LUMASON [Suspect]
     Active Substance: SULFUR HEXAFLUORIDE
     Indication: Echocardiogram
     Dates: start: 20240927, end: 20240927

REACTIONS (3)
  - Dyspnoea [None]
  - Flushing [None]
  - Infusion related reaction [None]

NARRATIVE: CASE EVENT DATE: 20240927
